FAERS Safety Report 4462150-3 (Version None)
Quarter: 2004Q3

REPORT INFORMATION
  Report Type: 
  Country: None (occurrence: None)
  Receive Date: 20040929
  Receipt Date: 20040922
  Transmission Date: 20050211
  Serious: Yes (Life-Threatening, Hospitalization)
  Sender: FDA-Public Use
  Company Number: NO-MERCK-0409NOR00019

PATIENT
  Age: 71 Year
  Sex: Male

DRUGS (2)
  1. ASPIRIN AND MAGNESIUM OXIDE [Suspect]
     Indication: ATRIAL FIBRILLATION
     Route: 048
  2. VIOXX [Suspect]
     Route: 048

REACTIONS (5)
  - BLOOD PRESSURE FLUCTUATION [None]
  - GASTRIC ULCER [None]
  - HAEMATEMESIS [None]
  - MELAENA [None]
  - TACHYCARDIA [None]
